FAERS Safety Report 13022195 (Version 11)
Quarter: 2017Q4

REPORT INFORMATION
  Report Type: Spontaneous
  Country: US (occurrence: US)
  Receive Date: 20161213
  Receipt Date: 20171009
  Transmission Date: 20180320
  Serious: Yes (Hospitalization, Other)
  Sender: FDA-Public Use
  Company Number: US-PFIZER INC-2016564073

PATIENT
  Age: 58 Year
  Sex: Female
  Weight: 167.8 kg

DRUGS (12)
  1. IBRANCE [Suspect]
     Active Substance: PALBOCICLIB
     Dosage: UNK
     Dates: start: 20170831
  2. IBRANCE [Suspect]
     Active Substance: PALBOCICLIB
     Dosage: 125 MG, CYCLIC (DAY1-21 Q 28 DAYS)
     Route: 048
     Dates: start: 20161118
  3. IBRANCE [Suspect]
     Active Substance: PALBOCICLIB
     Indication: BREAST CANCER METASTATIC
     Dosage: 125 MG, CYCLIC (DAILY ON 1-21 DAYS EVERY 28 DAYS)
     Route: 048
     Dates: start: 20161118
  4. IBRANCE [Suspect]
     Active Substance: PALBOCICLIB
     Dosage: 125 MG, CYCLIC (D1-21 Q28 DAYS)
     Route: 048
     Dates: end: 20170920
  5. FEMARA [Concomitant]
     Active Substance: LETROZOLE
     Dosage: UNK
  6. EXEMESTANE. [Concomitant]
     Active Substance: EXEMESTANE
     Dosage: UNK
  7. IBRANCE [Suspect]
     Active Substance: PALBOCICLIB
     Dosage: 125 MG, CYCLIC (DAILY ON 1-21 DAYS EVERY 28 DAYS)
     Route: 048
     Dates: start: 20161118
  8. IBRANCE [Suspect]
     Active Substance: PALBOCICLIB
     Dosage: 125 MG, CYCLIC (DAY1-21 Q 28 DAYS)
     Route: 048
     Dates: start: 20161118
  9. IBRANCE [Suspect]
     Active Substance: PALBOCICLIB
     Dosage: UNK
     Dates: start: 20170425, end: 2017
  10. IBRANCE [Suspect]
     Active Substance: PALBOCICLIB
     Dosage: UNK
     Dates: start: 20161227
  11. IBRANCE [Suspect]
     Active Substance: PALBOCICLIB
     Dosage: 125 MG, CYCLIC (DAILY ON 1-21 DAYS EVERY 28 DAYS)
     Route: 048
     Dates: start: 20161118
  12. IBRANCE [Suspect]
     Active Substance: PALBOCICLIB
     Dosage: 125 MG, CYCLIC (DAILY ON 1-21 DAYS EVERY 28 DAYS)
     Route: 048
     Dates: start: 20161118

REACTIONS (12)
  - White blood cell count decreased [Recovered/Resolved]
  - Product use in unapproved indication [Unknown]
  - Headache [Not Recovered/Not Resolved]
  - Nasal herpes [Not Recovered/Not Resolved]
  - Radiation injury [Recovering/Resolving]
  - Neoplasm progression [Unknown]
  - Atrial fibrillation [Unknown]
  - Cardiac failure congestive [Unknown]
  - Blood creatinine abnormal [Unknown]
  - Oral herpes [Unknown]
  - Fatigue [Unknown]
  - Pulmonary thrombosis [Unknown]
